FAERS Safety Report 23853105 (Version 1)
Quarter: 2024Q2

REPORT INFORMATION
  Report Type: Spontaneous
  Country: US (occurrence: US)
  Receive Date: 20240514
  Receipt Date: 20240514
  Transmission Date: 20240716
  Serious: No
  Sender: FDA-Public Use
  Company Number: US-CIPLA LTD.-2024US01930

PATIENT

DRUGS (1)
  1. ALBUTEROL [Suspect]
     Active Substance: ALBUTEROL
     Indication: Product used for unknown indication
     Dosage: 90 MCG, BID, (2 PUFFS), FREQUENCY (TWICE, 1 PUFF IN MORNING AND 1 PUFF AT NIGHT)
     Route: 065

REACTIONS (2)
  - Incorrect dose administered by device [Unknown]
  - Product cleaning inadequate [Unknown]
